FAERS Safety Report 15787193 (Version 1)
Quarter: 2019Q1

REPORT INFORMATION
  Report Type: Spontaneous
  Country: US (occurrence: US)
  Receive Date: 20190103
  Receipt Date: 20190103
  Transmission Date: 20190417
  Serious: Yes (Other)
  Sender: FDA-Public Use
  Company Number: US-THE MENTHOLATUM COMPANY-2060817

PATIENT
  Age: 40 Year
  Sex: Male
  Weight: 100 kg

DRUGS (1)
  1. RED CROSS TOOTHACHE [Suspect]
     Active Substance: EUGENOL
     Indication: TOOTHACHE
     Route: 004

REACTIONS (1)
  - Hypoaesthesia [Not Recovered/Not Resolved]

NARRATIVE: CASE EVENT DATE: 20181204
